FAERS Safety Report 17503388 (Version 2)
Quarter: 2020Q1

REPORT INFORMATION
  Report Type: Spontaneous
  Country: US (occurrence: US)
  Receive Date: 20200305
  Receipt Date: 20200305
  Transmission Date: 20200409
  Serious: Yes (Death, Hospitalization, Other)
  Sender: FDA-Public Use
  Company Number: US-CELGENEUS-USA-20200301264

PATIENT
  Age: 70 Year
  Sex: Female

DRUGS (1)
  1. POMALYST [Suspect]
     Active Substance: POMALIDOMIDE
     Indication: PLASMA CELL MYELOMA
     Dosage: 4 MILLIGRAM
     Route: 048
     Dates: start: 20200115, end: 20200210

REACTIONS (5)
  - Death [Fatal]
  - Fall [Unknown]
  - Hypercalcaemia of malignancy [Unknown]
  - Encephalopathy [Unknown]
  - Humerus fracture [Unknown]

NARRATIVE: CASE EVENT DATE: 20200202
